FAERS Safety Report 7341203-6 (Version None)
Quarter: 2011Q1

REPORT INFORMATION
  Report Type: 
  Country: None (occurrence: None)
  Receive Date: 20110309
  Receipt Date: 20110224
  Transmission Date: 20110831
  Serious: Yes (Death)
  Sender: FDA-Public Use
  Company Number: US-ELI_LILLY_AND_COMPANY-US201102007012

PATIENT
  Age: 53 Year
  Sex: Male

DRUGS (4)
  1. CARBOPLATIN [Concomitant]
     Indication: NON-SMALL CELL LUNG CANCER
     Dates: start: 20101217
  2. ALIMTA [Suspect]
     Indication: NON-SMALL CELL LUNG CANCER
     Dosage: 500 MG/M2, UNK
     Dates: start: 20101217
  3. ZOMETA [Concomitant]
  4. MORPHINE [Concomitant]
     Route: 058

REACTIONS (4)
  - BONE PAIN [None]
  - DISEASE PROGRESSION [None]
  - DEATH [None]
  - HOSPICE CARE [None]
